FAERS Safety Report 16813135 (Version 1)
Quarter: 2019Q3

REPORT INFORMATION
  Report Type: Other
  Country: US (occurrence: US)
  Receive Date: 20190916
  Receipt Date: 20190916
  Transmission Date: 20191005
  Serious: Yes (Hospitalization)
  Sender: FDA-Public Use
  Company Number: US-LEADIANT BIOSCIENCES INC-2019STPI000079

PATIENT
  Sex: Male

DRUGS (8)
  1. MATULANE [Suspect]
     Active Substance: PROCARBAZINE HYDROCHLORIDE
     Indication: NON-HODGKIN^S LYMPHOMA
     Dosage: 200 MG, QD
     Route: 048
     Dates: start: 20181212
  2. ACYCLOVIR                          /00587301/ [Concomitant]
     Active Substance: ACYCLOVIR
  3. FAMOTIDINE. [Concomitant]
     Active Substance: FAMOTIDINE
  4. LEVOFLOXACIN. [Concomitant]
     Active Substance: LEVOFLOXACIN
  5. XARELTO [Concomitant]
     Active Substance: RIVAROXABAN
  6. ROPINIROLE. [Concomitant]
     Active Substance: ROPINIROLE
  7. LEUKOVORIN [Concomitant]
     Active Substance: LEUCOVORIN SODIUM
  8. GABAPENTIN. [Concomitant]
     Active Substance: GABAPENTIN

REACTIONS (3)
  - Adverse event [Unknown]
  - Malaise [Unknown]
  - Pneumonia [Unknown]
